FAERS Safety Report 16743051 (Version 1)
Quarter: 2019Q3

REPORT INFORMATION
  Report Type: Report from Study
  Country: None (occurrence: AR)
  Receive Date: 20190827
  Receipt Date: 20190827
  Transmission Date: 20191005
  Serious: Yes (Hospitalization)
  Sender: FDA-Public Use
  Company Number: AR-ABBVIE-19K-007-2902718-00

PATIENT
  Age: 69 Year
  Sex: Female

DRUGS (3)
  1. ATLANSIL [Suspect]
     Active Substance: AMIODARONE
     Indication: ARRHYTHMIA
     Route: 065
  2. ATLANSIL [Suspect]
     Active Substance: AMIODARONE
     Route: 065
  3. VENCLEXTA [Suspect]
     Active Substance: VENETOCLAX
     Indication: CHRONIC LYMPHOCYTIC LEUKAEMIA
     Route: 048
     Dates: start: 20180921

REACTIONS (1)
  - General physical health deterioration [Recovering/Resolving]

NARRATIVE: CASE EVENT DATE: 20190822
